FAERS Safety Report 9851766 (Version 3)
Quarter: 2014Q2

REPORT INFORMATION
  Report Type: Spontaneous
  Country: GB (occurrence: GB)
  Receive Date: 20140129
  Receipt Date: 20140419
  Transmission Date: 20141212
  Serious: Yes (Hospitalization)
  Sender: FDA-Public Use
  Company Number: GB-ACCORD-021460

PATIENT
  Age: 72 Year
  Sex: Female

DRUGS (14)
  1. ALLOPURINOL/ALLOPURINOL SODIUM [Suspect]
     Indication: GOUT
     Route: 048
     Dates: start: 20131101, end: 20140110
  2. SERETIDE [Concomitant]
     Dosage: TWO PUFFS, TWICE DAILY
  3. SIMVASTATIN [Concomitant]
     Dosage: AT NIGHT.
     Route: 048
  4. AMINOPHYLLINE [Concomitant]
     Route: 048
  5. ACETYLSALICYLIC ACID [Concomitant]
     Route: 048
  6. FUROSEMIDE [Concomitant]
     Indication: DYSPNOEA
     Route: 048
  7. INDAPAMIDE/INDAPAMIDE HEMIHYDRATE [Concomitant]
     Route: 048
  8. TIOTROPIUM/TIOTROPIUM BROMIDE [Concomitant]
  9. ARANESP [Suspect]
     Indication: NEPHROGENIC ANAEMIA
     Route: 058
     Dates: start: 20131014
  10. LANSOPRAZOLE [Suspect]
     Indication: PRODUCT USED FOR UNKNOWN INDICATION
     Route: 048
     Dates: start: 20131101, end: 20140110
  11. NOVOMIX [Concomitant]
     Route: 058
  12. DOSULEPIN [Concomitant]
     Indication: FLUID OVERLOAD
     Dosage: AT NIGHT.
     Route: 048
  13. RAMIPRIL [Concomitant]
     Route: 048
  14. SALBUTAMOL [Concomitant]
     Dosage: 100MCG INHALER - 2 PUFFS AS NECESSARY.
     Route: 055

REACTIONS (8)
  - Pruritus generalised [Unknown]
  - Wheezing [Unknown]
  - Skin exfoliation [Unknown]
  - Lymphocytic infiltration [Unknown]
  - Eczema [Unknown]
  - Parakeratosis [Unknown]
  - Drug eruption [Unknown]
  - Dermatitis exfoliative [Recovered/Resolved]
